FAERS Safety Report 21961867 (Version 1)
Quarter: 2023Q1

REPORT INFORMATION
  Report Type: Spontaneous
  Country: US (occurrence: None)
  Receive Date: 20230204
  Receipt Date: 20230204
  Transmission Date: 20230418
  Serious: Yes (Life-Threatening, Other)
  Sender: FDA-Public Use
  Company Number: None

PATIENT
  Age: 72 Year
  Sex: Female

DRUGS (9)
  1. FERUMOXYTOL [Suspect]
     Active Substance: FERUMOXYTOL
     Indication: Iron deficiency anaemia
     Dosage: FREQUENCY : ONCE;?
     Route: 041
  2. AMLODIPINE [Concomitant]
     Active Substance: AMLODIPINE BESYLATE
  3. ATORVASTATIN [Concomitant]
     Active Substance: ATORVASTATIN
  4. BACLOFEN [Concomitant]
     Active Substance: BACLOFEN
  5. CITALOPRAM [Concomitant]
     Active Substance: CITALOPRAM HYDROBROMIDE
  6. GABAPENTIN [Concomitant]
     Active Substance: GABAPENTIN
  7. OXYCODONE [Concomitant]
     Active Substance: OXYCODONE
  8. PANTOPRAZOLE [Concomitant]
     Active Substance: PANTOPRAZOLE
  9. SPIRIVA [Concomitant]
     Active Substance: TIOTROPIUM BROMIDE MONOHYDRATE

REACTIONS (9)
  - Loss of consciousness [None]
  - Urinary incontinence [None]
  - Headache [None]
  - Chest pain [None]
  - Dyspnoea [None]
  - Infusion related reaction [None]
  - Anxiety [None]
  - Tachycardia [None]
  - Haemoglobin decreased [None]
